FAERS Safety Report 23015381 (Version 1)
Quarter: 2023Q4

REPORT INFORMATION
  Report Type: Spontaneous
  Country: US (occurrence: US)
  Receive Date: 20231002
  Receipt Date: 20231002
  Transmission Date: 20240110
  Serious: Yes (Hospitalization, Other)
  Sender: FDA-Public Use
  Company Number: US-AMNEAL PHARMACEUTICALS-2023-AMRX-03359

PATIENT
  Age: 32 Year

DRUGS (1)
  1. BUPROPION HYDROCHLORIDE SR [Suspect]
     Active Substance: BUPROPION HYDROCHLORIDE
     Indication: Product used for unknown indication
     Dosage: UNK
     Route: 065

REACTIONS (5)
  - Ventricular tachycardia [Recovering/Resolving]
  - Shock [Recovering/Resolving]
  - Generalised tonic-clonic seizure [Recovering/Resolving]
  - Suicide attempt [Unknown]
  - Intentional overdose [Unknown]
